FAERS Safety Report 16314110 (Version 5)
Quarter: 2021Q3

REPORT INFORMATION
  Report Type: Spontaneous
  Country: US (occurrence: US)
  Receive Date: 20190515
  Receipt Date: 20210721
  Transmission Date: 20211014
  Serious: Yes (Other)
  Sender: FDA-Public Use
  Company Number: US-GLAXOSMITHKLINE-US2019GSK084862

PATIENT
  Age: 44 Year
  Sex: Female

DRUGS (12)
  1. PREVACID 24 HR [Suspect]
     Active Substance: LANSOPRAZOLE
     Indication: PRODUCT USED FOR UNKNOWN INDICATION
     Dosage: UNK
     Route: 048
  2. PREVACID [Suspect]
     Active Substance: LANSOPRAZOLE
     Indication: GASTROOESOPHAGEAL REFLUX DISEASE
     Dosage: 40 MG
     Route: 065
     Dates: start: 1997, end: 2003
  3. NEXIUM [Suspect]
     Active Substance: ESOMEPRAZOLE MAGNESIUM
     Indication: GASTROOESOPHAGEAL REFLUX DISEASE
     Dosage: 40 MG, BID
     Route: 065
     Dates: start: 20060606, end: 20151021
  4. PRILOSEC [Suspect]
     Active Substance: OMEPRAZOLE MAGNESIUM
     Indication: GASTROOESOPHAGEAL REFLUX DISEASE
     Dosage: 40 MG
     Route: 065
     Dates: start: 1997, end: 2000
  5. NEXIUM [Suspect]
     Active Substance: ESOMEPRAZOLE MAGNESIUM
     Dosage: 40 MG, BID
     Route: 065
     Dates: start: 20060606, end: 20170224
  6. PROTONIX                           /00661201/ [Suspect]
     Active Substance: OMEPRAZOLE
     Indication: GASTROOESOPHAGEAL REFLUX DISEASE
     Dosage: 40 MG, QD
     Route: 065
     Dates: start: 2000, end: 2016
  7. PANTOPRAZOLE                       /01263204/ [Suspect]
     Active Substance: PANTOPRAZOLE SODIUM
     Indication: GASTROOESOPHAGEAL REFLUX DISEASE
     Dosage: 40 MG, BID
     Route: 065
     Dates: start: 2013, end: 2016
  8. PANTOPRAZOLE                       /01263204/ [Suspect]
     Active Substance: PANTOPRAZOLE SODIUM
     Dosage: 40MG, BID
     Route: 042
  9. PANTOPRAZOLE                       /01263204/ [Suspect]
     Active Substance: PANTOPRAZOLE SODIUM
     Dosage: 40 MG, BID
     Route: 048
     Dates: start: 20130812, end: 20170226
  10. PROTONIX                           /00661201/ [Suspect]
     Active Substance: OMEPRAZOLE
     Dosage: 40 MG, BID
     Route: 042
  11. ESOMEPRAZOLE. [Suspect]
     Active Substance: ESOMEPRAZOLE MAGNESIUM
     Indication: GASTROOESOPHAGEAL REFLUX DISEASE
     Dosage: 40 MG, BID
     Route: 065
     Dates: start: 2014, end: 201708
  12. NEXIUM [Suspect]
     Active Substance: ESOMEPRAZOLE MAGNESIUM
     Dosage: 40 MG, QD
     Route: 048
     Dates: start: 20140714, end: 20170226

REACTIONS (12)
  - Nephrogenic anaemia [Unknown]
  - Glycosuria [Unknown]
  - Proteinuria [Unknown]
  - Polyuria [Unknown]
  - Chronic kidney disease [Not Recovered/Not Resolved]
  - Renal failure [Unknown]
  - Nocturia [Unknown]
  - Hypertensive nephropathy [Unknown]
  - Nephrolithiasis [Unknown]
  - Acute kidney injury [Not Recovered/Not Resolved]
  - Dysuria [Unknown]
  - Nephropathy [Unknown]

NARRATIVE: CASE EVENT DATE: 1997
